FAERS Safety Report 6590336-0 (Version None)
Quarter: 2010Q1

REPORT INFORMATION
  Report Type: 
  Country: None (occurrence: None)
  Receive Date: 20100219
  Receipt Date: 20100209
  Transmission Date: 20100710
  Serious: Yes (Hospitalization)
  Sender: FDA-Public Use
  Company Number: US-KINGPHARMUSA00001-K200900043

PATIENT
  Age: 81 Year
  Sex: Male

DRUGS (5)
  1. ALTACE [Suspect]
     Indication: HYPERTENSION
     Dosage: 2.5 MG, QD
     Route: 048
  2. ISCOVER [Suspect]
     Indication: CORONARY ARTERY DISEASE
     Dosage: 75 MG, QD
     Route: 048
     Dates: start: 20070301, end: 20080813
  3. ISCOVER [Suspect]
     Dosage: 75 MG, QD
     Route: 048
     Dates: start: 20080815
  4. ACTRAPID HUMAN [Suspect]
     Indication: TYPE 2 DIABETES MELLITUS
     Dosage: 4 IU, TID
     Route: 058
     Dates: start: 20070401
  5. CORDAREX                           /00133102/ [Suspect]
     Indication: ARRHYTHMIA
     Dosage: 200 MG, QD
     Route: 048

REACTIONS (5)
  - BLOOD CREATININE INCREASED [None]
  - GASTROINTESTINAL HAEMORRHAGE [None]
  - GLOMERULAR FILTRATION RATE DECREASED [None]
  - HAEMORRHAGIC EROSIVE GASTRITIS [None]
  - HAEMORRHOIDAL HAEMORRHAGE [None]
